FAERS Safety Report 6557708-1 (Version None)
Quarter: 2010Q1

REPORT INFORMATION
  Report Type: 
  Country: None (occurrence: None)
  Receive Date: 20100126
  Receipt Date: 20091111
  Transmission Date: 20100710
  Serious: Yes (Other)
  Sender: FDA-Public Use
  Company Number: LMI-2009-00320

PATIENT
  Sex: Female

DRUGS (4)
  1. DEFINITY [Suspect]
     Indication: ELECTROCARDIOGRAM ABNORMAL
     Dosage: 1.5 ML DEFINITY DILUTED IN 8.5 ML NORMAL SALINE (1.5 ML,3 IN 1 D),INTRAVENOUS BOLUS
     Route: 040
     Dates: start: 20090217, end: 20090217
  2. DEFINITY [Suspect]
     Indication: STRESS ECHOCARDIOGRAM
     Dosage: 1.5 ML DEFINITY DILUTED IN 8.5 ML NORMAL SALINE (1.5 ML,3 IN 1 D),INTRAVENOUS BOLUS
     Route: 040
     Dates: start: 20090217, end: 20090217
  3. DEFINITY [Suspect]
     Indication: SURGERY
     Dosage: 1.5 ML DEFINITY DILUTED IN 8.5 ML NORMAL SALINE (1.5 ML,3 IN 1 D),INTRAVENOUS BOLUS
     Route: 040
     Dates: start: 20090217, end: 20090217
  4. DOBUTAMINE (DOBUTAMINE) [Concomitant]

REACTIONS (8)
  - BACK PAIN [None]
  - DIZZINESS [None]
  - HYPOTENSION [None]
  - NAUSEA [None]
  - PRURITUS [None]
  - RASH [None]
  - VENTRICULAR TACHYCARDIA [None]
  - VOMITING [None]
